FAERS Safety Report 8152727-6 (Version None)
Quarter: 2012Q1

REPORT INFORMATION
  Report Type: 
  Country: None (occurrence: None)
  Receive Date: 20120221
  Receipt Date: 20120210
  Transmission Date: 20120608
  Serious: Yes (Hospitalization)
  Sender: FDA-Public Use
  Company Number: US-JNJFOC-20111210291

PATIENT
  Sex: Male
  Weight: 81.65 kg

DRUGS (2)
  1. REMICADE [Suspect]
     Indication: COLITIS ULCERATIVE
     Dosage: 4TH INFUSION
     Route: 042
     Dates: start: 20110831, end: 20111207
  2. STEROIDS NOS [Concomitant]
     Indication: ADRENAL DISORDER
     Route: 048
     Dates: start: 19860101

REACTIONS (6)
  - ABASIA [None]
  - PAIN [None]
  - MULTI-ORGAN FAILURE [None]
  - HYPOKINESIA [None]
  - DISCOMFORT [None]
  - MUSCULOSKELETAL STIFFNESS [None]
